FAERS Safety Report 9659379 (Version 2)
Quarter: 2013Q4

REPORT INFORMATION
  Report Type: Spontaneous
  Country: GB (occurrence: GB)
  Receive Date: 20131031
  Receipt Date: 20131031
  Transmission Date: 20140711
  Serious: Yes (Life-Threatening, Hospitalization, Disabling)
  Sender: FDA-Public Use
  Company Number: GB-DRREDDYS-GER/UKI/13/0035002

PATIENT
  Sex: Female

DRUGS (2)
  1. LAMOTRIGINE [Suspect]
     Indication: EPILEPSY
  2. NORETHISTERONE [Interacting]
     Indication: MENSTRUAL DISORDER

REACTIONS (9)
  - Blood bilirubin increased [Unknown]
  - Nasopharyngitis [Recovered/Resolved]
  - Drug interaction [Unknown]
  - Malaise [Unknown]
  - Influenza like illness [Recovered/Resolved]
  - Cholelithiasis [Unknown]
  - Pruritus [Unknown]
  - Jaundice [Unknown]
  - Liver disorder [Recovered/Resolved]
